FAERS Safety Report 9030551 (Version 2)
Quarter: 2013Q1

REPORT INFORMATION
  Report Type: Spontaneous
  Country: BR (occurrence: BR)
  Receive Date: 20130122
  Receipt Date: 20130212
  Transmission Date: 20140127
  Serious: Yes (Other)
  Sender: FDA-Public Use
  Company Number: BR-PFIZER INC-2013022165

PATIENT
  Age: 57 Year
  Sex: Female
  Weight: 85 kg

DRUGS (2)
  1. LYRICA [Suspect]
     Indication: SPINAL PAIN
     Dosage: UNSPECIFIED DOSE, ONCE A DAY
     Route: 048
     Dates: start: 201211
  2. LYRICA [Suspect]
     Dosage: UNK
     Route: 048
     Dates: start: 20130108

REACTIONS (2)
  - Spinal disorder [Recovering/Resolving]
  - Therapeutic response unexpected [Unknown]
